FAERS Safety Report 7821118-7 (Version None)
Quarter: 2011Q4

REPORT INFORMATION
  Report Type: 
  Country: None (occurrence: None)
  Receive Date: 20111018
  Receipt Date: 20111012
  Transmission Date: 20120403
  Serious: Yes (Hospitalization)
  Sender: FDA-Public Use
  Company Number: AT-CEPHALON-2011005389

PATIENT
  Sex: Male

DRUGS (9)
  1. ALLOSTAD [Concomitant]
  2. RITUXIMAB [Suspect]
     Route: 042
     Dates: start: 20110714
  3. PANTOPRAZOLE SODIUM [Concomitant]
  4. LASIX [Concomitant]
  5. DAFLON [Concomitant]
  6. BENDAMUSTINE HCL [Suspect]
     Route: 042
     Dates: start: 20110715
  7. ASPIRIN [Concomitant]
  8. LEVOTHYROXINE SODIUM [Concomitant]
  9. PRAVASTATIN [Concomitant]

REACTIONS (1)
  - CHOLECYSTITIS ACUTE [None]
